FAERS Safety Report 13446968 (Version 1)
Quarter: 2017Q2

REPORT INFORMATION
  Report Type: Spontaneous
  Country: US (occurrence: US)
  Receive Date: 20170415
  Receipt Date: 20170415
  Transmission Date: 20170830
  Serious: Yes (Other)
  Sender: FDA-Public Use
  Company Number: None

PATIENT
  Age: 47 Year
  Sex: Female
  Weight: 58.5 kg

DRUGS (3)
  1. CORTISONE [Suspect]
     Active Substance: CORTISONE\HYDROCORTISONE
     Indication: INFLAMMATION
     Dosage: OTHER ROUTE:SHOT IN FOOT?
     Dates: start: 20161024
  2. WOMEN^S VITAMINS [Concomitant]
  3. CALCIUM [Concomitant]
     Active Substance: CALCIUM

REACTIONS (4)
  - Muscle tightness [None]
  - Hypoaesthesia oral [None]
  - Hypoaesthesia [None]
  - Injection site pain [None]

NARRATIVE: CASE EVENT DATE: 20161024
